FAERS Safety Report 8603921-9 (Version None)
Quarter: 2012Q3

REPORT INFORMATION
  Report Type: 
  Country: None (occurrence: None)
  Receive Date: 20120820
  Receipt Date: 20120814
  Transmission Date: 20120928
  Serious: Yes (Hospitalization)
  Sender: FDA-Public Use
  Company Number: US-AMGEN-USASP2012039917

PATIENT
  Age: 89 Year
  Sex: Female
  Weight: 62.132 kg

DRUGS (9)
  1. HYDRALAZINE HCL [Concomitant]
     Dosage: 100 MG, TID
     Route: 048
  2. CLONIDINE [Concomitant]
     Dosage: 0.2 MG, QWK
     Route: 062
  3. DILTIAZEM [Concomitant]
     Dosage: 80 MG, BID
     Route: 048
  4. PROLIA [Suspect]
     Indication: OSTEOPOROSIS POSTMENOPAUSAL
     Dosage: 60 MG, Q6MO
     Route: 058
     Dates: start: 20120524, end: 20120531
  5. LANTUS [Concomitant]
     Dosage: 4 UNIT, QD
     Route: 058
  6. VITAMIN B12                        /00056201/ [Concomitant]
     Dosage: 1000 MG/ML, QMO
     Route: 030
  7. LIPITOR [Concomitant]
     Dosage: 20 MG, QD
     Route: 048
  8. BUMETANIDE [Concomitant]
     Dosage: 1 MG, QD
     Route: 048
  9. ASPIRIN [Concomitant]
     Dosage: 81 MG, QD
     Route: 048

REACTIONS (3)
  - VITAMIN D DECREASED [None]
  - ELECTROCARDIOGRAM QT PROLONGED [None]
  - HYPOCALCAEMIA [None]
